FAERS Safety Report 8285751-3 (Version None)
Quarter: 2012Q2

REPORT INFORMATION
  Report Type: 
  Country: None (occurrence: None)
  Receive Date: 20120413
  Receipt Date: 20120404
  Transmission Date: 20120825
  Serious: Yes (Hospitalization)
  Sender: FDA-Public Use
  Company Number: FR-ELI_LILLY_AND_COMPANY-FR201201001965

PATIENT
  Age: 77 Year
  Sex: Male
  Weight: 60 kg

DRUGS (6)
  1. EZETIMIBE [Concomitant]
     Dosage: UNK, UNKNOWN
     Route: 065
  2. FORTEO [Suspect]
     Indication: OSTEOPOROSIS
     Dosage: 20 UG, QD
     Route: 058
     Dates: start: 20101201
  3. PLAVIX [Concomitant]
     Dosage: UNK, UNKNOWN
     Route: 065
  4. VASTAREL [Concomitant]
     Dosage: UNK, UNKNOWN
     Route: 065
  5. PRAXILENE [Concomitant]
     Dosage: UNK, UNKNOWN
     Route: 065
  6. CELECTOL [Concomitant]
     Dosage: UNK, UNKNOWN
     Route: 065

REACTIONS (3)
  - HEAD INJURY [None]
  - FALL [None]
  - LOSS OF CONSCIOUSNESS [None]
